FAERS Safety Report 7439523-X (Version None)
Quarter: 2011Q2

REPORT INFORMATION
  Report Type: 
  Country: None (occurrence: None)
  Receive Date: 20110427
  Receipt Date: 20110419
  Transmission Date: 20111010
  Serious: Yes (Other)
  Sender: FDA-Public Use
  Company Number: DE-SANOFI-AVENTIS-2011SA018032

PATIENT
  Age: 78 Year
  Sex: Female
  Weight: 86 kg

DRUGS (3)
  1. CARVEDILOL [Concomitant]
     Route: 048
  2. AMLODIPINE/VALSARTAN [Concomitant]
     Dosage: INN: AMLODIPINE/VALSARTAN/HYDROCHLOROTHIAZIDEDOSAGE: 10/320/25 MG
     Route: 048
  3. MULTAQ [Suspect]
     Indication: ATRIAL FIBRILLATION
     Route: 048
     Dates: start: 20101008, end: 20101110

REACTIONS (2)
  - BLOOD CREATININE INCREASED [None]
  - RENAL FAILURE [None]
